FAERS Safety Report 9363597 (Version 3)
Quarter: 2013Q3

REPORT INFORMATION
  Report Type: Report from Study
  Country: AU (occurrence: AU)
  Receive Date: 20130624
  Receipt Date: 20130802
  Transmission Date: 20140515
  Serious: Yes (Hospitalization)
  Sender: FDA-Public Use
  Company Number: PHHY2013AU063937

PATIENT
  Age: 77 Year
  Sex: Female

DRUGS (7)
  1. ACLASTA [Suspect]
     Indication: OSTEOPOROSIS
     Dosage: 5 MG, UNK
     Route: 042
     Dates: start: 201206
  2. FRUSEMIDE [Concomitant]
     Indication: CARDIAC FAILURE CONGESTIVE
     Dosage: 20 MG, UNK
     Route: 048
  3. GOPTEN [Concomitant]
     Dosage: 1 MG, UNK
     Route: 048
  4. NEXUM [Concomitant]
     Dosage: 20 MG, UNK
     Route: 048
     Dates: start: 20130627
  5. ATORVACHOL [Concomitant]
     Indication: HYPERLIPIDAEMIA
     Dosage: 40 MG, UNK
     Route: 048
  6. MAREVAN [Concomitant]
     Indication: DEEP VEIN THROMBOSIS
     Dosage: 3 MG, UNK
     Route: 048
     Dates: end: 20130711
  7. WARFARIN [Concomitant]
     Dosage: UNK UKN, UNK

REACTIONS (7)
  - Myocardial infarction [Recovered/Resolved]
  - Ulcer haemorrhage [Recovered/Resolved]
  - Haemorrhage [Recovered/Resolved]
  - Gastrointestinal haemorrhage [Recovered/Resolved]
  - Epistaxis [Recovered/Resolved]
  - Chest pain [Unknown]
  - Telangiectasia [Unknown]
